FAERS Safety Report 4640803-1 (Version None)
Quarter: 2005Q2

REPORT INFORMATION
  Report Type: 
  Country: None (occurrence: None)
  Receive Date: 20050324
  Receipt Date: 20041220
  Transmission Date: 20051028
  Serious: No
  Sender: FDA-Public Use
  Company Number: 211259

PATIENT
  Sex: Female

DRUGS (2)
  1. AVASTIN [Suspect]
     Dosage: INTRAVENOUS
     Route: 042
     Dates: start: 20041203
  2. ERLOTINIB(ERLOTINIB) TABLET [Suspect]
     Dosage: ORAL
     Route: 048
     Dates: start: 20041203

REACTIONS (2)
  - ALOPECIA [None]
  - RASH [None]
